FAERS Safety Report 6159345-X (Version None)
Quarter: 2009Q2

REPORT INFORMATION
  Report Type: 
  Country: None (occurrence: None)
  Receive Date: 20090415
  Receipt Date: 20090415
  Transmission Date: 20091009
  Serious: Yes (Other)
  Sender: FDA-Public Use
  Company Number: None

PATIENT
  Age: 49 Year
  Sex: Female
  Weight: 158.759 kg

DRUGS (5)
  1. CYMBALTA [Suspect]
     Indication: NEURALGIA
     Dosage: 1 DAILY PO
     Route: 048
     Dates: start: 20081028, end: 20090408
  2. OXYCODONE HCL [Concomitant]
  3. NAPROXEN SODIUM [Concomitant]
  4. FENTANYL TRANSDERMAL SYSTEM [Concomitant]
  5. LORATADINE [Concomitant]

REACTIONS (21)
  - AMNESIA [None]
  - ANHEDONIA [None]
  - BALANCE DISORDER [None]
  - DISABILITY [None]
  - DISTURBANCE IN ATTENTION [None]
  - DYSGRAPHIA [None]
  - FEELING ABNORMAL [None]
  - GASTROINTESTINAL DISORDER [None]
  - HALLUCINATIONS, MIXED [None]
  - ILL-DEFINED DISORDER [None]
  - IMPAIRED WORK ABILITY [None]
  - INSOMNIA [None]
  - MOTOR DYSFUNCTION [None]
  - PALPITATIONS [None]
  - PRURITUS [None]
  - SLEEP DISORDER [None]
  - SPEECH DISORDER [None]
  - TREMOR [None]
  - URINARY INCONTINENCE [None]
  - VOMITING [None]
  - WEIGHT INCREASED [None]
